FAERS Safety Report 17003949 (Version 2)
Quarter: 2024Q1

REPORT INFORMATION
  Report Type: Report from Study
  Country: CA (occurrence: None)
  Receive Date: 20191107
  Receipt Date: 20240109
  Transmission Date: 20240409
  Serious: Yes (Other)
  Sender: FDA-Public Use
  Company Number: CA-ORION CORPORATION ORION PHARMA-TREX2019-5264

PATIENT
  Age: 35 Year
  Sex: Male

DRUGS (12)
  1. METHOTREXATE [Suspect]
     Active Substance: METHOTREXATE
     Indication: Product used for unknown indication
  2. COSENTYX [Suspect]
     Active Substance: SECUKINUMAB
     Indication: Psoriasis
  3. COSENTYX [Suspect]
     Active Substance: SECUKINUMAB
  4. COSENTYX [Suspect]
     Active Substance: SECUKINUMAB
  5. COSENTYX [Suspect]
     Active Substance: SECUKINUMAB
  6. COSENTYX [Suspect]
     Active Substance: SECUKINUMAB
  7. COSENTYX [Suspect]
     Active Substance: SECUKINUMAB
  8. COSENTYX [Suspect]
     Active Substance: SECUKINUMAB
  9. ACITRETIN [Concomitant]
     Active Substance: ACITRETIN
  10. ENBREL [Concomitant]
     Active Substance: ETANERCEPT
  11. BETAMETHASONE DIPROPIONATE-CALCIPOTRIOL MONOHYDRATE [Concomitant]
  12. HYDROCORTISONE-MICONAZOLE [Concomitant]

REACTIONS (6)
  - Abdominal discomfort [Not Recovered/Not Resolved]
  - Abdominal pain upper [Not Recovered/Not Resolved]
  - Oesophageal candidiasis [Not Recovered/Not Resolved]
  - Skin lesion [Not Recovered/Not Resolved]
  - Psoriasis [Not Recovered/Not Resolved]
  - Product dispensing error [Not Recovered/Not Resolved]
